FAERS Safety Report 9084366 (Version 1)
Quarter: 2013Q1

REPORT INFORMATION
  Report Type: Spontaneous
  Country: US (occurrence: US)
  Receive Date: 20130131
  Receipt Date: 20130131
  Transmission Date: 20140127
  Serious: Yes (Other)
  Sender: FDA-Public Use
  Company Number: US-ASTRAZENECA-2013SE05088

PATIENT
  Age: 48 Year
  Sex: Male

DRUGS (5)
  1. CRESTOR [Suspect]
     Route: 048
     Dates: start: 201206, end: 20130112
  2. ASPIRIN [Concomitant]
  3. JANUMET [Concomitant]
     Indication: DIABETES MELLITUS
  4. HYDROTHIAZIDE [Concomitant]
     Indication: DIURETIC THERAPY
  5. LOTREL [Concomitant]

REACTIONS (1)
  - Blood creatine phosphokinase increased [Unknown]
